FAERS Safety Report 4431203-8 (Version None)
Quarter: 2004Q3

REPORT INFORMATION
  Report Type: 
  Country: None (occurrence: None)
  Receive Date: 20040824
  Receipt Date: 20040816
  Transmission Date: 20050211
  Serious: Yes (Hospitalization)
  Sender: FDA-Public Use
  Company Number: JP-JNJFOC-20040806416

PATIENT
  Age: 77 Year
  Sex: Female

DRUGS (6)
  1. RISPERDAL [Suspect]
     Indication: SCHIZOPHRENIA
     Route: 049
  2. BIPERIDEN HYDROCHLORIDE [Suspect]
     Indication: SCHIZOPHRENIA
     Route: 049
  3. MECOBALAMIN [Concomitant]
     Route: 049
  4. MENATETRENONE [Concomitant]
     Route: 049
  5. ETHYL ICOSAPENTATE [Concomitant]
     Route: 049
  6. NICERGOLINE [Concomitant]
     Route: 049

REACTIONS (2)
  - DRUG INTERACTION [None]
  - RHABDOMYOLYSIS [None]
